FAERS Safety Report 18775958 (Version 1)
Quarter: 2021Q1

REPORT INFORMATION
  Report Type: Report from Study
  Country: NL (occurrence: NL)
  Receive Date: 20210122
  Receipt Date: 20210122
  Transmission Date: 20210419
  Serious: Yes (Death)
  Sender: FDA-Public Use
  Company Number: NL-PFIZER INC-2021032870

PATIENT
  Sex: Female

DRUGS (6)
  1. FLUOROURACIL. [Suspect]
     Active Substance: FLUOROURACIL
     Dosage: 500 MG/M2, CYCLIC
  2. THIOTEPA. [Suspect]
     Active Substance: THIOTEPA
     Dosage: 480 MG/M2, CYCLIC
  3. EPIRUBICIN [Suspect]
     Active Substance: EPIRUBICIN
     Dosage: 90 MG/M2, CYCLIC
  4. CARBOPLATIN. [Suspect]
     Active Substance: CARBOPLATIN
     Dosage: 1600 MG/M2, CYCLIC
  5. TAMOXIFEN [Concomitant]
     Active Substance: TAMOXIFEN
     Dosage: UNK
  6. CYCLOPHOSPHAMIDE. [Suspect]
     Active Substance: CYCLOPHOSPHAMIDE
     Dosage: 6000 MG/M2, CYCLIC

REACTIONS (1)
  - Death [Fatal]
